FAERS Safety Report 7499556-4 (Version None)
Quarter: 2011Q2

REPORT INFORMATION
  Report Type: 
  Country: None (occurrence: None)
  Receive Date: 20110524
  Receipt Date: 20110511
  Transmission Date: 20111010
  Serious: Yes (Hospitalization)
  Sender: FDA-Public Use
  Company Number: JP-UCBSA-015495

PATIENT
  Sex: Female
  Weight: 47.8 kg

DRUGS (34)
  1. CIMZIA [Suspect]
     Indication: RHEUMATOID ARTHRITIS
     Route: 058
     Dates: start: 20091210, end: 20100707
  2. LIRANAFTATE [Concomitant]
     Dosage: ADEQUATE DOSE
     Dates: start: 20100823
  3. LIRANAFTATE [Concomitant]
     Dosage: ADEQUATE DOSE
     Dates: start: 20110330
  4. SULFAMETHOXAZOLE TRIMETHOPRIM [Concomitant]
     Dosage: 4 TABLETS A WEEK
     Dates: start: 20110302
  5. PREDNISOLONE [Concomitant]
     Dates: start: 20060613
  6. BUCILLAMINE [Concomitant]
     Dates: start: 20070625, end: 20100803
  7. SODIUM RISEDRONATE HYDRATE [Concomitant]
     Dosage: ONE POINT SUSPENSION OF THE ADMINISTRATION
     Dates: start: 20081020
  8. ISONIAZID [Concomitant]
     Dates: start: 20110427
  9. DIFLUCORTOLONE VALERATE [Concomitant]
     Dosage: ADEQUATE DOSE
     Dates: start: 20100617, end: 20100625
  10. SULFASALAZINE [Concomitant]
     Dosage: ONE-POINT SUSPENSION OF THE ADMINISTRATION
     Dates: start: 20081020
  11. SULFASALAZINE [Concomitant]
     Dates: start: 20110502
  12. AURANOFIN [Concomitant]
     Dates: start: 20070402, end: 20101012
  13. FAMOTIDINE [Concomitant]
     Dates: start: 20081020
  14. SODIUM AZULENE SULFONATE L-GLUTAMINE [Concomitant]
     Dates: start: 20060613
  15. AMPHOTERICIN B [Concomitant]
     Dates: start: 20110427
  16. PREDNISOLONE [Concomitant]
     Dates: start: 20100527, end: 20100721
  17. FAMOTIDINE [Concomitant]
     Dates: start: 20110427
  18. ISONIAZID [Concomitant]
     Dates: start: 20090803
  19. ATORVASTATIN CALCIUM [Concomitant]
     Dates: start: 20110427
  20. TERBINAFINE HYDROCHLORIDE [Concomitant]
     Dates: start: 20101111
  21. PREDNISOLONE [Concomitant]
     Dates: start: 20110427
  22. SENNOSIDE [Concomitant]
     Dates: start: 20060613
  23. LOXOPROFEN SODIUM [Concomitant]
     Dosage: ADEQUATE DOSE
     Dates: start: 20100414
  24. THEOPHYLLINE [Concomitant]
     Dates: start: 20060101
  25. SENNOSIDE [Concomitant]
     Dates: start: 20110302
  26. OLOPATADINE HYDROCHLORIDE [Concomitant]
     Dates: start: 20100617, end: 20100625
  27. DIFLUCORTOLONE VALERATE [Concomitant]
     Dosage: ADEQUATE DOSE
     Dates: start: 20110330
  28. ATORVASTATIN CALCIUM [Concomitant]
     Dates: start: 20100203
  29. AMPHOTERICIN B [Concomitant]
     Dates: start: 20100623
  30. VIDARABINE [Concomitant]
     Dosage: ADEQUATE DOSE
     Dates: start: 20100804
  31. SENNOSIDE [Concomitant]
     Dosage: 24 MG PRN
     Dates: start: 20110302
  32. CIMZIA [Suspect]
     Route: 058
     Dates: end: 20110413
  33. THEOPHYLLINE [Concomitant]
     Dates: start: 20110427
  34. SODIUM AZULENE SULFONATE L-GLUTAMINE [Concomitant]
     Dates: start: 20110427

REACTIONS (2)
  - DIZZINESS [None]
  - DERMAL CYST [None]
